FAERS Safety Report 7714402-9 (Version None)
Quarter: 2011Q3

REPORT INFORMATION
  Report Type: 
  Country: None (occurrence: None)
  Receive Date: 20110829
  Receipt Date: 20110215
  Transmission Date: 20111222
  Serious: No
  Sender: FDA-Public Use
  Company Number: US-BAYER-2011-015940

PATIENT
  Age: 48 Year
  Sex: Male

DRUGS (1)
  1. BETASERON [Suspect]
     Indication: PROGRESSIVE MULTIPLE SCLEROSIS
     Dosage: 0.25 MG, UNK
     Route: 058
     Dates: start: 20040101

REACTIONS (3)
  - INJECTION SITE REACTION [None]
  - INJECTION SITE SCAB [None]
  - INJECTION SITE DISCOLOURATION [None]
